FAERS Safety Report 24593119 (Version 4)
Quarter: 2025Q1

REPORT INFORMATION
  Report Type: Spontaneous
  Country: CA (occurrence: CA)
  Receive Date: 20241108
  Receipt Date: 20250131
  Transmission Date: 20250408
  Serious: Yes (Other)
  Sender: CELLTRION
  Company Number: CA-PFIZER INC-202400275737

PATIENT

DRUGS (7)
  1. INFLECTRA [Suspect]
     Active Substance: INFLIXIMAB-DYYB
     Indication: Crohn^s disease
     Route: 042
     Dates: start: 20220901, end: 20231106
  2. INFLECTRA [Suspect]
     Active Substance: INFLIXIMAB-DYYB
     Route: 042
     Dates: start: 20231207
  3. INFLECTRA [Suspect]
     Active Substance: INFLIXIMAB-DYYB
     Route: 042
     Dates: start: 20240924
  4. INFLECTRA [Suspect]
     Active Substance: INFLIXIMAB-DYYB
     Route: 042
     Dates: start: 20250122
  5. CALCIUM [Concomitant]
     Active Substance: CALCIUM
     Route: 065
  6. IRON [Concomitant]
     Active Substance: IRON
     Route: 065
  7. PREDNISONE [Concomitant]
     Active Substance: PREDNISONE
     Route: 065
     Dates: start: 20220721

REACTIONS (3)
  - Skin lesion [Unknown]
  - Skin infection [Unknown]
  - Basal cell carcinoma [Unknown]

NARRATIVE: CASE EVENT DATE: 20240101
